FAERS Safety Report 5517730-0 (Version None)
Quarter: 2007Q4

REPORT INFORMATION
  Report Type: 
  Country: None (occurrence: None)
  Receive Date: 20071113
  Receipt Date: 20071101
  Transmission Date: 20080405
  Serious: Yes (Hospitalization)
  Sender: FDA-Public Use
  Company Number: WAES 0711USA00219

PATIENT
  Age: 67 Year
  Sex: Male
  Weight: 100.2449 kg

DRUGS (9)
  1. CAP VORINOSTAT UNK [Suspect]
     Indication: PROSTATE CANCER METASTATIC
     Dosage: 100 MG/DAILY/PO
     Route: 048
     Dates: start: 20071016, end: 20071030
  2. DOCETAXEL [Suspect]
     Indication: PROSTATE CANCER METASTATIC
     Dosage: 50 MG/M[2]/1X/IV
     Route: 042
     Dates: start: 20071019, end: 20071019
  3. DECADRON [Concomitant]
  4. LIPITOR [Concomitant]
  5. TOPROL-XL [Concomitant]
  6. ASPIRIN [Concomitant]
  7. PROCHLORPERAZINE [Concomitant]
  8. VITAMIN D (UNSPECIFIED) [Concomitant]
  9. VITAMINS (UNSPECIFIED) [Concomitant]

REACTIONS (5)
  - BLOOD PRESSURE DECREASED [None]
  - GASTRITIS EROSIVE [None]
  - GASTROENTERITIS RADIATION [None]
  - GASTROINTESTINAL HAEMORRHAGE [None]
  - HIATUS HERNIA [None]
